FAERS Safety Report 5431413-7 (Version None)
Quarter: 2007Q3

REPORT INFORMATION
  Report Type: 
  Country: None (occurrence: None)
  Receive Date: 20070830
  Receipt Date: 20070604
  Transmission Date: 20080115
  Serious: No
  Sender: FDA-Public Use
  Company Number: A0654101A

PATIENT
  Age: 67 Year
  Sex: Female

DRUGS (5)
  1. WELLBUTRIN XL [Suspect]
     Dosage: 150MG PER DAY
     Route: 048
     Dates: start: 20070201
  2. PREMARIN [Concomitant]
  3. MOBIC [Concomitant]
  4. ALLEGRA [Concomitant]
  5. NICOTINE [Concomitant]

REACTIONS (1)
  - DRUG INEFFECTIVE [None]
